FAERS Safety Report 15765298 (Version 1)
Quarter: 2018Q4

REPORT INFORMATION
  Report Type: Spontaneous
  Country: US (occurrence: US)
  Receive Date: 20181218
  Receipt Date: 20181218
  Transmission Date: 20190205
  Serious: No
  Sender: FDA-Public Use
  Company Number: None

PATIENT

DRUGS (2)
  1. MORPHINE SUL SOL 100/5ML [Suspect]
     Active Substance: MORPHINE SULFATE
  2. LORAZEPAM CON 2MG/ML [Suspect]
     Active Substance: LORAZEPAM

REACTIONS (2)
  - Wrong patient received product [None]
  - Transcription medication error [None]
